FAERS Safety Report 5863746-4 (Version None)
Quarter: 2008Q3

REPORT INFORMATION
  Report Type: 
  Country: None (occurrence: None)
  Receive Date: 20080828
  Receipt Date: 20080820
  Transmission Date: 20090109
  Serious: Yes (Hospitalization)
  Sender: FDA-Public Use
  Company Number: US-GENENTECH-266639

PATIENT
  Sex: Male

DRUGS (8)
  1. AVASTIN [Suspect]
     Indication: COLORECTAL CANCER METASTATIC
     Dosage: 10 MG/KG, UNK
     Dates: start: 20080226
  2. FOLINIC ACID [Concomitant]
     Indication: COLORECTAL CANCER METASTATIC
     Dosage: UNK
     Dates: start: 20080201
  3. FLUOROURACIL [Concomitant]
     Indication: COLORECTAL CANCER METASTATIC
     Dosage: UNK
     Dates: start: 20080201
  4. OXALIPLATIN [Concomitant]
     Indication: COLORECTAL CANCER METASTATIC
     Dosage: UNK
     Dates: start: 20080201
  5. LEVOTHYROXINE [Concomitant]
     Indication: DRUG USE FOR UNKNOWN INDICATION
  6. PAXIL [Concomitant]
     Indication: DRUG USE FOR UNKNOWN INDICATION
  7. LORTAB [Concomitant]
     Indication: DRUG USE FOR UNKNOWN INDICATION
  8. COMPAZINE [Concomitant]
     Indication: DRUG USE FOR UNKNOWN INDICATION

REACTIONS (1)
  - CONFUSIONAL STATE [None]
